FAERS Safety Report 20198742 (Version 1)
Quarter: 2021Q4

REPORT INFORMATION
  Report Type: Report from Study
  Country: FR (occurrence: FR)
  Receive Date: 20211217
  Receipt Date: 20211217
  Transmission Date: 20220304
  Serious: Yes (Hospitalization, Other)
  Sender: FDA-Public Use
  Company Number: FR-DRCDAPHPP-202000110-MED

PATIENT

DRUGS (7)
  1. PEGASPARGASE [Suspect]
     Active Substance: PEGASPARGASE
     Indication: Acute lymphocytic leukaemia
     Dosage: 3725 IU, QD
     Route: 042
     Dates: start: 20200903, end: 20200903
  2. VINCRISTINE [Suspect]
     Active Substance: VINCRISTINE
     Indication: Acute lymphocytic leukaemia
     Dosage: 2 MG, ON DAY 1
     Route: 042
     Dates: start: 20200831, end: 20200914
  3. DOXORUBICIN [Suspect]
     Active Substance: DOXORUBICIN
     Indication: Acute lymphocytic leukaemia
     Dosage: 37.2 MG, ON DAY 1
     Route: 042
     Dates: start: 20200831, end: 20200914
  4. DEXAMETHASONE [Suspect]
     Active Substance: DEXAMETHASONE
     Indication: Acute lymphocytic leukaemia
     Dosage: 15 MG, ON DAYS 1-7
     Route: 048
     Dates: start: 20200831, end: 20200924
  5. TN UNSPECIFIED [Concomitant]
     Indication: Acute lymphocytic leukaemia
     Dosage: 15 MG, ON DAY 4
     Route: 037
     Dates: start: 20200903, end: 20200903
  6. TN UNSPECIFIED [Concomitant]
     Indication: Acute lymphocytic leukaemia
     Dosage: 30 MG, ON DAY 4
     Route: 037
     Dates: start: 20200903, end: 20200903
  7. TN UNSPECIFIED [Concomitant]
     Indication: Acute lymphocytic leukaemia
     Dosage: 15 MG, ON DAY 4
     Route: 037
     Dates: start: 20200903, end: 20200903

REACTIONS (3)
  - COVID-19 [Recovered/Resolved]
  - Bone infarction [Recovered/Resolved]
  - Hypertriglyceridaemia [Not Recovered/Not Resolved]

NARRATIVE: CASE EVENT DATE: 20200908
